FAERS Safety Report 8575499-X (Version None)
Quarter: 2012Q3

REPORT INFORMATION
  Report Type: 
  Country: None (occurrence: None)
  Receive Date: 20120807
  Receipt Date: 20120731
  Transmission Date: 20120928
  Serious: Yes (Hospitalization)
  Sender: FDA-Public Use
  Company Number: CA-ELI_LILLY_AND_COMPANY-CA201205004722

PATIENT
  Age: 63 Year
  Sex: Female

DRUGS (25)
  1. FOLIC ACID [Concomitant]
     Dosage: UNK, UNKNOWN
     Route: 065
  2. BISOPROLOL FUMARATE [Concomitant]
     Dosage: UNK, UNKNOWN
     Route: 065
  3. VENTOLIN                                /SCH/ [Concomitant]
     Dosage: UNK, PRN
     Route: 065
  4. ARIXTRA [Concomitant]
     Dosage: UNK, UNKNOWN
     Route: 065
  5. DRISDOL [Concomitant]
     Dosage: UNK, UNKNOWN
     Route: 065
  6. QUETIAPINE [Concomitant]
     Dosage: UNK UNK, UNKNOWN
     Route: 065
  7. QUININE SULFATE [Concomitant]
     Dosage: UNK, UNKNOWN
     Route: 065
  8. FLUTICASONE PROPIONATE [Concomitant]
     Dosage: UNK, UNKNOWN
     Route: 065
  9. LASIX [Concomitant]
     Dosage: UNK, UNKNOWN
     Route: 065
  10. CODEINE CONTIN [Concomitant]
     Dosage: UNK, UNKNOWN
     Route: 065
  11. COTAZYM [Concomitant]
     Dosage: UNK, UNKNOWN
     Route: 065
  12. BEFORTE [Concomitant]
     Dosage: UNK, UNKNOWN
     Route: 065
  13. MAGNESIUM [Concomitant]
     Dosage: UNK, UNKNOWN
     Route: 065
  14. ACETYLSALICYLIC ACID SRT [Concomitant]
     Dosage: UNK, UNKNOWN
     Route: 065
  15. MIACALCIN [Concomitant]
     Dosage: UNK, UNKNOWN
     Route: 065
  16. SYNTHROID [Concomitant]
     Dosage: UNK, UNKNOWN
     Route: 065
  17. CALCIUM [Concomitant]
     Dosage: UNK, UNKNOWN
     Route: 065
  18. VITAMIN D [Concomitant]
     Dosage: UNK, UNKNOWN
     Route: 065
  19. PREVACID [Concomitant]
     Dosage: UNK, UNKNOWN
     Route: 065
  20. SPIRIVA [Concomitant]
     Dosage: UNK, UNKNOWN
     Route: 065
  21. LIPITOR [Concomitant]
     Dosage: UNK, UNKNOWN
     Route: 065
  22. CYCLOBENZAPRINE [Concomitant]
     Dosage: UNK, UNKNOWN
     Route: 065
  23. FORTEO [Suspect]
     Indication: OSTEOPOROSIS
     Dosage: 20 UG, QD
     Route: 058
     Dates: start: 20111209
  24. FLOMAX [Concomitant]
     Dosage: UNK, UNKNOWN
     Route: 045
  25. GABAPENTIN [Concomitant]
     Dosage: UNK, UNKNOWN
     Route: 065

REACTIONS (1)
  - ABDOMINAL HERNIA [None]
